FAERS Safety Report 8016878-9 (Version None)
Quarter: 2012Q1

REPORT INFORMATION
  Report Type: 
  Country: None (occurrence: None)
  Receive Date: 20120102
  Receipt Date: 20111220
  Transmission Date: 20120608
  Serious: Yes (Other)
  Sender: FDA-Public Use
  Company Number: PHHY2011JP110875

PATIENT
  Age: 23 Year
  Sex: Male

DRUGS (2)
  1. SANDIMMUNE [Suspect]
     Indication: BONE MARROW TRANSPLANT
     Route: 041
  2. SANDIMMUNE [Suspect]
     Indication: GRAFT VERSUS HOST DISEASE

REACTIONS (1)
  - PERICARDIAL EFFUSION [None]
